FAERS Safety Report 8912405 (Version 1)
Quarter: 2012Q4

REPORT INFORMATION
  Report Type: Report from Study
  Country: JP (occurrence: JP)
  Receive Date: 20121115
  Receipt Date: 20121115
  Transmission Date: 20130627
  Serious: Yes (Other)
  Sender: FDA-Public Use
  Company Number: JP-VERTEX PHARMACEUTICAL INC.-AE-2012-009060

PATIENT
  Age: 58 Year
  Sex: Male

DRUGS (6)
  1. VX-950 (TELAPREVIR) [Suspect]
     Indication: CHRONIC HEPATITIS C
     Dosage: 2250 mg, qd
     Dates: start: 20120414
  2. RIBAVIRIN [Suspect]
     Indication: CHRONIC HEPATITIS C
     Dosage: 800 mg, qd
     Route: 048
     Dates: start: 20120414, end: 20120510
  3. RIBAVIRIN [Suspect]
     Dosage: 600 mg, qd
     Route: 048
     Dates: start: 20120511
  4. PEGINTERFERON ALFA-2B [Suspect]
     Indication: CHRONIC HEPATITIS C
     Dosage: 100 ?g/dose/week
     Route: 058
     Dates: start: 20120414
  5. LETRAC [Concomitant]
     Dosage: 60 mg, prn
     Route: 048
     Dates: start: 20120414, end: 20120524
  6. MARZULENE                          /00317302/ [Concomitant]
     Dosage: 0.5 g, prn
     Route: 048
     Dates: start: 20120414, end: 20120524

REACTIONS (1)
  - Retinopathy [Unknown]
